FAERS Safety Report 7591560-0 (Version None)
Quarter: 2011Q3

REPORT INFORMATION
  Report Type: 
  Country: None (occurrence: None)
  Receive Date: 20110701
  Receipt Date: 20110701
  Transmission Date: 20111222
  Serious: No
  Sender: FDA-Public Use
  Company Number: None

PATIENT
  Sex: Female
  Weight: 58.0604 kg

DRUGS (1)
  1. ADCIRCA [Suspect]
     Indication: PULMONARY ARTERIAL HYPERTENSION
     Dosage: 20 MG QD PO
     Route: 048
     Dates: start: 20110511, end: 20110513

REACTIONS (4)
  - DIARRHOEA [None]
  - INFLUENZA LIKE ILLNESS [None]
  - PAIN [None]
  - VOMITING [None]
